FAERS Safety Report 8201744-6 (Version None)
Quarter: 2012Q1

REPORT INFORMATION
  Report Type: 
  Country: None (occurrence: None)
  Receive Date: 20120307
  Receipt Date: 20120301
  Transmission Date: 20120608
  Serious: Yes (Death)
  Sender: FDA-Public Use
  Company Number: 2012MA002777

PATIENT
  Age: 30 Year
  Sex: Male

DRUGS (5)
  1. CETIRIZINE HCL [Suspect]
     Indication: TOXICITY TO VARIOUS AGENTS
  2. GABAPENTIN [Suspect]
     Indication: TOXICITY TO VARIOUS AGENTS
  3. KADIAN [Suspect]
     Indication: TOXICITY TO VARIOUS AGENTS
  4. HYDROXYZINE HCL [Suspect]
     Indication: TOXICITY TO VARIOUS AGENTS
  5. ASPIRIN [Suspect]
     Indication: TOXICITY TO VARIOUS AGENTS

REACTIONS (1)
  - COMPLETED SUICIDE [None]
